FAERS Safety Report 20415863 (Version 1)
Quarter: 2022Q1

REPORT INFORMATION
  Report Type: Spontaneous
  Country: CA (occurrence: CA)
  Receive Date: 20220202
  Receipt Date: 20220202
  Transmission Date: 20220423
  Serious: Yes (Hospitalization, Other)
  Sender: FDA-Public Use
  Company Number: CA-TEVA-2022-CA-2004760

PATIENT
  Age: 29 Year
  Sex: Female
  Weight: 52 kg

DRUGS (3)
  1. COPAXONE [Suspect]
     Active Substance: GLATIRAMER ACETATE
     Route: 065
  2. MESALAMINE [Suspect]
     Active Substance: MESALAMINE
     Indication: Colitis ulcerative
     Dosage: 1 DOSAGE FORMS DAILY;
     Route: 065
  3. VITAMIN D [Suspect]
     Active Substance: VITAMIN D NOS
     Indication: Multiple sclerosis
     Dosage: 10000 IU (INTERNATIONAL UNIT) DAILY;
     Route: 065

REACTIONS (2)
  - Colitis ulcerative [Recovered/Resolved]
  - Drug ineffective [Recovered/Resolved]
